FAERS Safety Report 4764188-5 (Version None)
Quarter: 2005Q3

REPORT INFORMATION
  Report Type: 
  Country: None (occurrence: None)
  Receive Date: 20050902
  Receipt Date: 20050223
  Transmission Date: 20060218
  Serious: Yes (Hospitalization)
  Sender: FDA-Public Use
  Company Number: PHEH2005US02425

PATIENT
  Age: 83 Year
  Sex: Female

DRUGS (1)
  1. MIACALCIN [Suspect]
     Dosage: INJECTION NOS

REACTIONS (2)
  - ASTHENIA [None]
  - BLOOD CALCIUM INCREASED [None]
